FAERS Safety Report 5939828-5 (Version None)
Quarter: 2008Q4

REPORT INFORMATION
  Report Type: 
  Country: None (occurrence: None)
  Receive Date: 20081104
  Receipt Date: 20081024
  Transmission Date: 20090506
  Serious: Yes (Hospitalization, Disabling, Other)
  Sender: FDA-Public Use
  Company Number: SE-JNJFOC-20071110463

PATIENT
  Sex: Male

DRUGS (5)
  1. INFLIXIMAB [Suspect]
     Indication: CROHN'S DISEASE
     Route: 042
  2. METOPROLOL TARTRATE [Concomitant]
     Indication: HYPERTENSION
  3. ATACAND [Concomitant]
     Indication: HYPERTENSION
  4. ACTRAPID [Concomitant]
     Indication: DIABETES MELLITUS
     Route: 042
  5. INSULATARD [Concomitant]

REACTIONS (2)
  - ATRIAL FIBRILLATION [None]
  - CEREBRAL HAEMORRHAGE [None]
